FAERS Safety Report 11431222 (Version 1)
Quarter: 2015Q3

REPORT INFORMATION
  Report Type: Spontaneous
  Country: FI (occurrence: FI)
  Receive Date: 20150828
  Receipt Date: 20150828
  Transmission Date: 20151125
  Serious: Yes (Other)
  Sender: FDA-Public Use
  Company Number: FI-PFIZER INC-2015282811

PATIENT
  Age: 72 Year
  Sex: Female

DRUGS (2)
  1. SALAZOPYRIN [Suspect]
     Active Substance: SULFASALAZINE
     Indication: SACROILIITIS
     Dosage: 2 G, DAILY
     Route: 048
     Dates: start: 20150630, end: 20150723
  2. TREXAN [Concomitant]
     Active Substance: METHOTREXATE SODIUM
     Indication: SACROILIITIS
     Dosage: 15 MG, WEEKLY

REACTIONS (3)
  - Iritis [Unknown]
  - Rash [Unknown]
  - Malaise [Unknown]

NARRATIVE: CASE EVENT DATE: 201507
